FAERS Safety Report 6051530-0 (Version None)
Quarter: 2009Q1

REPORT INFORMATION
  Report Type: 
  Country: None (occurrence: None)
  Receive Date: 20090126
  Receipt Date: 20090116
  Transmission Date: 20090719
  Serious: Yes (Death, Hospitalization)
  Sender: FDA-Public Use
  Company Number: A0764966A

PATIENT
  Age: 73 Year
  Sex: Female
  Weight: 76.4 kg

DRUGS (6)
  1. AVANDIA [Suspect]
     Dosage: 4MG IN THE MORNING
     Route: 048
     Dates: end: 20080101
  2. VICODIN [Concomitant]
  3. ZANAFLEX [Concomitant]
  4. TOPROL-XL [Concomitant]
  5. DILANTIN [Concomitant]
  6. LYRICA [Concomitant]

REACTIONS (2)
  - CARDIAC FAILURE CONGESTIVE [None]
  - DEATH [None]
